FAERS Safety Report 18915743 (Version 1)
Quarter: 2021Q1

REPORT INFORMATION
  Report Type: Spontaneous
  Country: US (occurrence: US)
  Receive Date: 20210219
  Receipt Date: 20210219
  Transmission Date: 20210420
  Serious: Yes (Other)
  Sender: FDA-Public Use
  Company Number: US-ADVANZ PHARMA-202102001360

PATIENT

DRUGS (3)
  1. SULFASALAZINE. [Concomitant]
     Active Substance: SULFASALAZINE
     Dosage: UNK
     Dates: start: 201909
  2. HYDROXYCHLOROQUINE [Suspect]
     Active Substance: HYDROXYCHLOROQUINE
     Dosage: UNK UNK, BID (500 MG?1000 MG)
     Route: 065
     Dates: start: 201806
  3. AZATHIOPRINE. [Concomitant]
     Active Substance: AZATHIOPRINE
     Dosage: UNK

REACTIONS (11)
  - Interstitial lung disease [Unknown]
  - Blood creatine phosphokinase increased [Unknown]
  - Abdominal pain [Unknown]
  - Myositis [Unknown]
  - Lung diffusion test decreased [Unknown]
  - Joint range of motion decreased [Unknown]
  - Iron deficiency anaemia [Unknown]
  - Antinuclear antibody positive [Unknown]
  - Tinea versicolour [Unknown]
  - Asthenia [Unknown]
  - Joint swelling [Unknown]
